FAERS Safety Report 8506105-8 (Version None)
Quarter: 2012Q3

REPORT INFORMATION
  Report Type: 
  Country: None (occurrence: None)
  Receive Date: 20120712
  Receipt Date: 20120709
  Transmission Date: 20120928
  Serious: Yes (Hospitalization)
  Sender: FDA-Public Use
  Company Number: US-ROCHE-1085783

PATIENT
  Age: 33 Year
  Sex: Female
  Weight: 82.1 kg

DRUGS (2)
  1. SIROLIMUS [Suspect]
     Indication: PRODUCT USED FOR UNKNOWN INDICATION
     Dosage: DAILY FOR 28 DAYS
     Route: 048
     Dates: start: 20120511
  2. VISMODEGIB [Suspect]
     Indication: PRODUCT USED FOR UNKNOWN INDICATION
     Dosage: DAILY FOR 28 DAYS.
     Route: 048
     Dates: start: 20120511

REACTIONS (3)
  - DEHYDRATION [None]
  - VOMITING [None]
  - NAUSEA [None]
